FAERS Safety Report 7289111-3 (Version None)
Quarter: 2011Q1

REPORT INFORMATION
  Report Type: 
  Country: None (occurrence: None)
  Receive Date: 20110211
  Receipt Date: 20110207
  Transmission Date: 20110831
  Serious: Yes (Death)
  Sender: FDA-Public Use
  Company Number: KR-BAYER-2011-011744

PATIENT
  Sex: Male
  Weight: 54 kg

DRUGS (16)
  1. MEK INHIBITOR (DIHYDROXYPROP-DIFLU-METHOXYPHEN-CYCLOPROPA-SULFAMI) [Suspect]
     Indication: HEPATIC NEOPLASM MALIGNANT
     Dosage: 50 MG, BID
     Route: 048
     Dates: start: 20110125, end: 20110203
  2. PHAZYME [SIMETICONE] [Concomitant]
     Indication: GASTRIC DISORDER
     Dosage: 600 MG, UNK
     Route: 048
     Dates: start: 20100816
  3. KYTRIL [Concomitant]
     Indication: VOMITING
     Dosage: UNK UNK, PRN
     Route: 048
     Dates: start: 20110125
  4. UNCODEABLE ^UNCLASSIFIABLE^ [Suspect]
  5. LOPERAMIDE [Concomitant]
     Indication: DIARRHOEA
     Dosage: UNK UNK, PRN
     Route: 048
     Dates: start: 20110125
  6. HEXAMIDIN [Concomitant]
     Indication: PROPHYLAXIS
     Dosage: UNK UNK, PRN
     Route: 048
     Dates: start: 20110125
  7. MEROPENEM [Suspect]
     Indication: SEPSIS
     Dosage: UNK
     Dates: start: 20110206
  8. VITAMINS NOS [Concomitant]
     Indication: VITAMIN SUPPLEMENTATION
     Dosage: 1 DF, UNK
     Route: 048
     Dates: start: 20100806
  9. INDENOLOL [Concomitant]
     Indication: HYPERTENSION
     Dosage: 20 MG, UNK
     Route: 048
     Dates: start: 20100806
  10. SORAFENIB (RAF KINASE INHIBITOR) [Suspect]
     Indication: HEPATIC NEOPLASM MALIGNANT
     Dosage: 600 MG (200 MG AM, 400 MG PM), QD
     Route: 048
     Dates: start: 20110125, end: 20110203
  11. LEGALON [Concomitant]
     Indication: PROPHYLAXIS
     Dosage: 280 MG, UNK
     Route: 048
     Dates: start: 20100806
  12. SPIRONOLACTONE [Concomitant]
     Indication: ASCITES
     Dosage: 50 MG, UNK
     Route: 048
     Dates: start: 20100823, end: 20110131
  13. ULCERLMIN [Concomitant]
     Indication: GASTRIC DISORDER
     Dosage: 3 G, UNK
     Route: 048
     Dates: start: 20100811
  14. SPIRONOLACTONE [Concomitant]
     Dosage: 25 MG, UNK
     Route: 048
     Dates: start: 20110201
  15. HYDROSON [Concomitant]
     Indication: PROPHYLAXIS
     Dosage: UNK UNK, PRN
     Route: 061
     Dates: start: 20110125
  16. METOCLOPRAMIDE HCL [Concomitant]
     Indication: VOMITING
     Dosage: UNK UNK, PRN
     Route: 048
     Dates: start: 20110125

REACTIONS (2)
  - HEPATIC ENCEPHALOPATHY [None]
  - SEPSIS [None]
